FAERS Safety Report 25301128 (Version 1)
Quarter: 2025Q2

REPORT INFORMATION
  Report Type: Spontaneous
  Country: IN (occurrence: IN)
  Receive Date: 20250512
  Receipt Date: 20250512
  Transmission Date: 20250716
  Serious: Yes (Life-Threatening)
  Sender: MYLAN
  Company Number: IN-MYLANLABS-2025M1040245

PATIENT
  Sex: Male

DRUGS (24)
  1. SILDENAFIL [Suspect]
     Active Substance: SILDENAFIL
     Indication: Heritable pulmonary arterial hypertension
     Dosage: 25 MILLIGRAM, TID
  2. SILDENAFIL [Suspect]
     Active Substance: SILDENAFIL
     Dosage: 25 MILLIGRAM, TID
     Route: 065
  3. SILDENAFIL [Suspect]
     Active Substance: SILDENAFIL
     Dosage: 25 MILLIGRAM, TID
     Route: 065
  4. SILDENAFIL [Suspect]
     Active Substance: SILDENAFIL
     Dosage: 25 MILLIGRAM, TID
  5. IMATINIB [Suspect]
     Active Substance: IMATINIB
     Indication: Heritable pulmonary arterial hypertension
     Dosage: 100 MILLIGRAM, QD
  6. IMATINIB [Suspect]
     Active Substance: IMATINIB
     Dosage: 100 MILLIGRAM, QD
  7. IMATINIB [Suspect]
     Active Substance: IMATINIB
     Dosage: 100 MILLIGRAM, QD
     Route: 065
  8. IMATINIB [Suspect]
     Active Substance: IMATINIB
     Dosage: 100 MILLIGRAM, QD
     Route: 065
  9. IMATINIB [Suspect]
     Active Substance: IMATINIB
     Dosage: 200 MILLIGRAM, QD
  10. IMATINIB [Suspect]
     Active Substance: IMATINIB
     Dosage: 200 MILLIGRAM, QD
  11. IMATINIB [Suspect]
     Active Substance: IMATINIB
     Dosage: 200 MILLIGRAM, QD
     Route: 065
  12. IMATINIB [Suspect]
     Active Substance: IMATINIB
     Dosage: 200 MILLIGRAM, QD
     Route: 065
  13. ACENOCOUMAROL [Suspect]
     Active Substance: ACENOCOUMAROL
     Indication: Heritable pulmonary arterial hypertension
  14. ACENOCOUMAROL [Suspect]
     Active Substance: ACENOCOUMAROL
     Route: 065
  15. ACENOCOUMAROL [Suspect]
     Active Substance: ACENOCOUMAROL
     Route: 065
  16. ACENOCOUMAROL [Suspect]
     Active Substance: ACENOCOUMAROL
  17. TADALAFIL [Suspect]
     Active Substance: TADALAFIL
     Indication: Heritable pulmonary arterial hypertension
  18. TADALAFIL [Suspect]
     Active Substance: TADALAFIL
     Route: 065
  19. TADALAFIL [Suspect]
     Active Substance: TADALAFIL
     Route: 065
  20. TADALAFIL [Suspect]
     Active Substance: TADALAFIL
  21. AMBRISENTAN [Suspect]
     Active Substance: AMBRISENTAN
     Indication: Heritable pulmonary arterial hypertension
     Dosage: 10 MILLIGRAM, QD
  22. AMBRISENTAN [Suspect]
     Active Substance: AMBRISENTAN
     Dosage: 10 MILLIGRAM, QD
     Route: 065
  23. AMBRISENTAN [Suspect]
     Active Substance: AMBRISENTAN
     Dosage: 10 MILLIGRAM, QD
     Route: 065
  24. AMBRISENTAN [Suspect]
     Active Substance: AMBRISENTAN
     Dosage: 10 MILLIGRAM, QD

REACTIONS (2)
  - Drug ineffective [Unknown]
  - Off label use [Unknown]
